FAERS Safety Report 11757378 (Version 4)
Quarter: 2015Q4

REPORT INFORMATION
  Report Type: Report from Study
  Country: HU (occurrence: HU)
  Receive Date: 20151120
  Receipt Date: 20151223
  Transmission Date: 20160304
  Serious: Yes (Hospitalization, Other)
  Sender: FDA-Public Use
  Company Number: HU-BAYER-2015-440794

PATIENT
  Sex: Male
  Weight: 103 kg

DRUGS (6)
  1. TENOX [AMLODIPINE MALEATE] [Concomitant]
     Indication: HYPERTENSION
     Dosage: 10 MG, BID
  2. STIVARGA [Suspect]
     Active Substance: REGORAFENIB
     Indication: COLORECTAL CANCER METASTATIC
     Dosage: 160 MG, QD
     Route: 048
     Dates: start: 20150925
  3. PERINDOPRIL ARGININE [Concomitant]
     Active Substance: PERINDOPRIL ARGININE
     Dosage: 5 MG, QD
  4. ULCERAN [RANITIDINE HYDROCHLORIDE] [Concomitant]
     Indication: ABDOMINAL PAIN UPPER
  5. ASPIRIN. [Concomitant]
     Active Substance: ASPIRIN
  6. NOACID [Concomitant]
     Active Substance: ALUMINUM HYDROXIDE
     Indication: ABDOMINAL PAIN UPPER

REACTIONS (27)
  - Abdominal pain [Not Recovered/Not Resolved]
  - Palmar-plantar erythrodysaesthesia syndrome [Recovered/Resolved]
  - Skin exfoliation [Recovered/Resolved]
  - Dry skin [Recovered/Resolved]
  - Hyperaesthesia [Recovered/Resolved]
  - Decreased appetite [Not Recovered/Not Resolved]
  - Gastrointestinal haemorrhage [Recovered/Resolved with Sequelae]
  - Constipation [Recovered/Resolved]
  - Fatigue [Recovered/Resolved]
  - Asthenia [Recovering/Resolving]
  - Abdominal pain upper [Not Recovered/Not Resolved]
  - Colorectal cancer metastatic [Not Recovered/Not Resolved]
  - Occult blood positive [Recovered/Resolved with Sequelae]
  - Hypertension [Recovered/Resolved]
  - Skin hypertrophy [Recovered/Resolved]
  - Rash [Recovered/Resolved]
  - Anaemia [None]
  - Tachycardia [Recovered/Resolved with Sequelae]
  - Diarrhoea [Recovered/Resolved]
  - Pyrexia [Recovered/Resolved]
  - Asthenia [Recovering/Resolving]
  - Fatigue [Not Recovered/Not Resolved]
  - Faeces discoloured [None]
  - Malaise [None]
  - Hyperhidrosis [None]
  - Aphonia [Not Recovered/Not Resolved]
  - Decreased appetite [Recovered/Resolved]

NARRATIVE: CASE EVENT DATE: 201510
